FAERS Safety Report 25769138 (Version 1)
Quarter: 2025Q3

REPORT INFORMATION
  Report Type: Spontaneous
  Country: EU (occurrence: EU)
  Receive Date: 20250905
  Receipt Date: 20250905
  Transmission Date: 20251020
  Serious: Yes (Death, Hospitalization, Other)
  Sender: AMGEN
  Company Number: EU-AMGEN-ITASP2025172717

PATIENT

DRUGS (9)
  1. FILGRASTIM [Suspect]
     Active Substance: FILGRASTIM
     Indication: Neutropenia
     Dosage: 300 MICROGRAM, QD
     Route: 065
  2. DOCETAXEL [Concomitant]
     Active Substance: DOCETAXEL
     Indication: Breast cancer recurrent
     Dosage: 80 MILLIGRAM/SQ. METER, Q2WK, THE DTX WAS SUSPENDED IN 250 ML OF 0.9% SODIUM CHLORIDE AND INFUSED OV
  3. IRINOTECAN [Concomitant]
     Active Substance: IRINOTECAN
     Indication: Breast cancer
     Dosage: 100 MILLIGRAM/SQ. METER, Q2WK, ON DAY 1, CPT- 11 DILUTED IN 250 ML SODIUM CHLORIDE AND INFUSED OVER
  4. DEXAMETHASONE [Concomitant]
     Active Substance: DEXAMETHASONE
     Indication: Prophylaxis
     Route: 040
  5. DEXAMETHASONE [Concomitant]
     Active Substance: DEXAMETHASONE
     Route: 030
  6. 5-hydroxytryptamine [Concomitant]
     Indication: Prophylaxis
  7. ATROPINE [Concomitant]
     Active Substance: ATROPINE
     Indication: Prophylaxis
  8. NEOMYCIN [Concomitant]
     Active Substance: NEOMYCIN
     Indication: Prophylaxis
     Route: 048
  9. PACLITAXEL [Concomitant]
     Active Substance: PACLITAXEL
     Indication: Breast cancer

REACTIONS (24)
  - Death [Fatal]
  - Neutropenic sepsis [Unknown]
  - Cholinergic syndrome [Unknown]
  - Breast cancer metastatic [Unknown]
  - Neurotoxicity [Unknown]
  - Hepatotoxicity [Unknown]
  - Diarrhoea [Unknown]
  - Fatigue [Unknown]
  - Alopecia [Unknown]
  - Thrombophlebitis [Unknown]
  - Neutropenia [Unknown]
  - Thrombocytopenia [Unknown]
  - Nausea [Unknown]
  - Vomiting [Unknown]
  - Conjunctivitis [Unknown]
  - Decreased appetite [Unknown]
  - Ejection fraction decreased [Unknown]
  - Weight decreased [Unknown]
  - Skin toxicity [Unknown]
  - Fluid retention [Unknown]
  - Anaemia [Unknown]
  - Therapy partial responder [Unknown]
  - Therapy non-responder [Unknown]
  - Palmar-plantar erythrodysaesthesia syndrome [Unknown]
